FAERS Safety Report 6534989-1 (Version None)
Quarter: 2010Q1

REPORT INFORMATION
  Report Type: 
  Country: None (occurrence: None)
  Receive Date: 20100112
  Receipt Date: 20100104
  Transmission Date: 20100710
  Serious: Yes (Other)
  Sender: FDA-Public Use
  Company Number: GB-MERCK-0802GBR00006

PATIENT
  Age: 66 Year
  Sex: Male
  Weight: 92 kg

DRUGS (7)
  1. ZETIA [Suspect]
     Indication: HYPERCHOLESTEROLAEMIA
     Route: 048
     Dates: start: 20080114, end: 20080122
  2. ASPIRIN [Concomitant]
     Route: 048
     Dates: start: 20080114
  3. BISOPROLOL [Concomitant]
     Indication: CARDIAC HYPERTROPHY
     Route: 048
     Dates: start: 20080114
  4. CLOPIDOGREL BISULFATE [Concomitant]
     Indication: CARDIAC HYPERTROPHY
     Route: 048
     Dates: start: 20080114
  5. NITROGLYCERIN [Concomitant]
     Indication: CARDIAC HYPERTROPHY
     Route: 065
     Dates: start: 20080114
  6. NITROGLYCERIN [Concomitant]
     Route: 065
     Dates: start: 20080114
  7. COZAAR [Concomitant]
     Indication: CARDIAC HYPERTROPHY
     Route: 048
     Dates: start: 20080114

REACTIONS (2)
  - RASH MACULAR [None]
  - RASH PRURITIC [None]
